FAERS Safety Report 25890144 (Version 3)
Quarter: 2025Q4

REPORT INFORMATION
  Report Type: Spontaneous
  Country: GB (occurrence: GB)
  Receive Date: 20251007
  Receipt Date: 20251020
  Transmission Date: 20260117
  Serious: Yes (Hospitalization)
  Sender: MYLAN
  Company Number: GB-MYLANLABS-2025M1084807

PATIENT
  Sex: Female
  Weight: 74 kg

DRUGS (6)
  1. CLOZARIL [Suspect]
     Active Substance: CLOZAPINE
     Indication: Schizophrenia
     Dosage: 50 MILLIGRAM, AM (ONCE DAILY IN THE MORNING
     Dates: start: 20210315, end: 20250920
  2. CLOZARIL [Suspect]
     Active Substance: CLOZAPINE
     Dosage: 200 MILLIGRAM, PM (ONCE DAILY IN THE MORNING)
     Dates: start: 20210315, end: 20250920
  3. CLOZARIL [Suspect]
     Active Substance: CLOZAPINE
     Dosage: UNK
  4. CHOLECALCIFEROL [Concomitant]
     Active Substance: CHOLECALCIFEROL
     Indication: Multiple sclerosis
     Dosage: 40000 INTERNATIONAL UNIT, QD
  5. PROPRANOLOL [Concomitant]
     Active Substance: PROPRANOLOL HYDROCHLORIDE
     Indication: Palpitations
     Dosage: 10 MILLIGRAM, BID
  6. KESIMPTA [Concomitant]
     Active Substance: OFATUMUMAB
     Indication: Multiple sclerosis
     Dosage: 20 MILLIGRAM, MONTHLY (ONCE MONTH)

REACTIONS (5)
  - Malaise [Unknown]
  - Hallucination, auditory [Recovering/Resolving]
  - Stress [Recovering/Resolving]
  - Mental impairment [Recovering/Resolving]
  - Therapy cessation [Unknown]

NARRATIVE: CASE EVENT DATE: 20250920
